FAERS Safety Report 15042229 (Version 1)
Quarter: 2018Q2

REPORT INFORMATION
  Report Type: Spontaneous
  Country: US (occurrence: US)
  Receive Date: 20180531
  Receipt Date: 20180531
  Transmission Date: 20180711
  Serious: No
  Sender: FDA-Public Use
  Company Number: None

PATIENT
  Age: 24 Year
  Sex: Female

DRUGS (1)
  1. MAVYRET [Suspect]
     Active Substance: GLECAPREVIR\PIBRENTASVIR
     Dates: start: 20180530, end: 20180530

REACTIONS (4)
  - Nausea [None]
  - Drug dose omission [None]
  - Fatigue [None]
  - Tremor [None]

NARRATIVE: CASE EVENT DATE: 20180530
